FAERS Safety Report 6188979-1 (Version None)
Quarter: 2009Q2

REPORT INFORMATION
  Report Type: 
  Country: None (occurrence: None)
  Receive Date: 20090513
  Receipt Date: 20090501
  Transmission Date: 20091009
  Serious: Yes (Hospitalization, Other)
  Sender: FDA-Public Use
  Company Number: US-PFIZER INC-2009206501

PATIENT
  Sex: Male
  Weight: 68.934 kg

DRUGS (6)
  1. XANAX [Suspect]
     Indication: CONFUSIONAL STATE
     Dosage: UNK
     Route: 048
     Dates: start: 20090116, end: 20090120
  2. XANAX [Suspect]
     Indication: AGGRESSION
  3. SEROQUEL [Suspect]
     Indication: AGGRESSION
     Route: 048
     Dates: start: 20090101, end: 20090120
  4. SEROQUEL [Suspect]
     Indication: CONFUSIONAL STATE
  5. NAMENDA [Suspect]
     Dosage: 20 MG, UNK
     Route: 048
     Dates: start: 20090101
  6. EXELON [Concomitant]
     Indication: DEMENTIA ALZHEIMER'S TYPE
     Route: 062

REACTIONS (2)
  - AGGRESSION [None]
  - CONFUSIONAL STATE [None]
